FAERS Safety Report 26054221 (Version 1)
Quarter: 2025Q4

REPORT INFORMATION
  Report Type: Spontaneous
  Country: US (occurrence: US)
  Receive Date: 20251117
  Receipt Date: 20251117
  Transmission Date: 20260118
  Serious: No
  Sender: ROCHE
  Company Number: US-ROCHE-10000432389

PATIENT
  Age: 11 Year
  Sex: Female
  Weight: 43.99 kg

DRUGS (5)
  1. XOLAIR [Suspect]
     Active Substance: OMALIZUMAB
     Indication: Food allergy
     Route: 065
     Dates: start: 202506
  2. XOLAIR [Suspect]
     Active Substance: OMALIZUMAB
  3. albuterol inhalers [Concomitant]
     Indication: Asthma
  4. Qvar inhalers [Concomitant]
     Indication: Asthma
  5. Epi Pens [Concomitant]

REACTIONS (2)
  - Procedural anxiety [Unknown]
  - Needle issue [Unknown]

NARRATIVE: CASE EVENT DATE: 20251106
